FAERS Safety Report 10870370 (Version 13)
Quarter: 2016Q2

REPORT INFORMATION
  Report Type: Report from Study
  Country: US (occurrence: US)
  Receive Date: 20150223
  Receipt Date: 20160429
  Transmission Date: 20160815
  Serious: Yes (Hospitalization, Other)
  Sender: FDA-Public Use
  Company Number: ADR-2015-00261

PATIENT
  Age: 53 Year
  Sex: Female

DRUGS (50)
  1. TYLENOL WITH CODEINE [Suspect]
     Active Substance: ACETAMINOPHEN\CODEINE PHOSPHATE
     Dosage: 1 TAB TWICE DAILY AS NEEDED
     Route: 048
     Dates: start: 20121005
  2. VITAMIN D [Suspect]
     Active Substance: CHOLECALCIFEROL
     Route: 048
     Dates: start: 20120630
  3. PERCOCET [Suspect]
     Active Substance: ACETAMINOPHEN\OXYCODONE HYDROCHLORIDE
     Dosage: AS NEEDED
     Route: 048
     Dates: start: 20150310
  4. LIORESAL [Suspect]
     Active Substance: BACLOFEN
     Route: 037
     Dates: start: 20150413, end: 20150501
  5. XARELTO [Suspect]
     Active Substance: RIVAROXABAN
     Dosage: 1 TAB IN THE EVENING
     Route: 048
     Dates: start: 20141124, end: 20150212
  6. LASIX [Suspect]
     Active Substance: FUROSEMIDE
     Dosage: 1 TAB DAILY
     Route: 048
     Dates: start: 20150105, end: 20150114
  7. LIORESAL [Suspect]
     Active Substance: BACLOFEN
     Route: 037
     Dates: start: 20150209, end: 20150212
  8. GABALON [Suspect]
     Active Substance: BACLOFEN
     Dosage: 138.57MCG/DAY
     Route: 037
     Dates: start: 20151130, end: 20160419
  9. PULMICORT TURBUHALER [Suspect]
     Active Substance: BUDESONIDE
     Dosage: 1 PUFF DAILY
     Route: 055
     Dates: start: 20120926
  10. CYMBALTA [Suspect]
     Active Substance: DULOXETINE HYDROCHLORIDE
     Dosage: 1 TAB DAILY
     Route: 048
     Dates: start: 20121023
  11. WARFARIN [Suspect]
     Active Substance: WARFARIN
     Route: 048
     Dates: end: 20150213
  12. CEFADROXIL. [Suspect]
     Active Substance: CEFADROXIL
     Dosage: TWICE DAILY
     Route: 048
     Dates: start: 20150310, end: 20150316
  13. CYMBALTA [Suspect]
     Active Substance: DULOXETINE HYDROCHLORIDE
     Dosage: 1 TAB DAILY
     Route: 048
     Dates: start: 20150203
  14. LIORESAL [Suspect]
     Active Substance: BACLOFEN
     Dosage: 126.11MCG/DAY
     Route: 037
     Dates: start: 20151009, end: 20151130
  15. LIORESAL [Suspect]
     Active Substance: BACLOFEN
     Dosage: 110.09MCG/DAY
     Route: 037
     Dates: end: 20151009
  16. VENTOLIN HFA [Suspect]
     Active Substance: ALBUTEROL SULFATE
     Dosage: 2 PUFFS EVERY 4-6 HOURS AS NEEDED
     Route: 055
     Dates: start: 20121019
  17. LIPITOR [Suspect]
     Active Substance: ATORVASTATIN CALCIUM
     Dosage: 1 TAB AT NIGHT
     Route: 048
  18. LOVENOX [Suspect]
     Active Substance: ENOXAPARIN SODIUM
     Route: 065
     Dates: start: 20141205, end: 20141205
  19. KEPPRA [Suspect]
     Active Substance: LEVETIRACETAM
     Dosage: 1 TAB TWICE DAILY
     Route: 048
     Dates: start: 20120926
  20. TRAMADOL. [Suspect]
     Active Substance: TRAMADOL
     Dosage: 1 TAB TWICE DAILY AS NEEDED
     Route: 048
     Dates: start: 20140401
  21. PERCOCET [Suspect]
     Active Substance: ACETAMINOPHEN\OXYCODONE HYDROCHLORIDE
     Dosage: AS NEEDED
     Route: 048
     Dates: start: 20150310
  22. CEFADROXIL. [Suspect]
     Active Substance: CEFADROXIL
     Dosage: TWICE DAILY
     Route: 048
     Dates: start: 20141216, end: 20141225
  23. NEURONTIN [Suspect]
     Active Substance: GABAPENTIN
     Dosage: THREE TIMES DAILY
     Route: 048
  24. LIORESAL [Suspect]
     Active Substance: BACLOFEN
     Dosage: 103.18MCG/DAY
     Route: 037
     Dates: start: 20150120, end: 20150122
  25. PRILOSEC [Suspect]
     Active Substance: OMEPRAZOLE MAGNESIUM
     Dosage: 1 TAB DAILY
     Route: 048
     Dates: start: 20150123
  26. LIORESAL [Suspect]
     Active Substance: BACLOFEN
     Dosage: 100MCG/DAY
     Route: 037
     Dates: start: 20150527
  27. SINGULAIR [Suspect]
     Active Substance: MONTELUKAST SODIUM
     Dosage: 1 TAB DAILY
     Route: 048
     Dates: start: 20010630
  28. VOLTAREN [Suspect]
     Active Substance: DICLOFENAC SODIUM
     Dosage: 4GM TO LEFT KNEE UP TO FOUR TIMES DAILY AS NEEDED
     Route: 061
     Dates: start: 20150415
  29. SENNA [Suspect]
     Active Substance: SENNA LEAF\SENNOSIDES\SENNOSIDES A AND B
     Dosage: 1 TAB DAILY
     Route: 048
     Dates: start: 20120630
  30. DEBROX [Suspect]
     Active Substance: CARBAMIDE PEROXIDE
     Dosage: TWICE DAILY VIA OTIC
     Route: 050
     Dates: start: 20150120
  31. LIORESAL [Suspect]
     Active Substance: BACLOFEN
     Dosage: 152.93MCG/DAY
     Route: 037
     Dates: start: 20150324, end: 20150413
  32. ZANAFLEX [Suspect]
     Active Substance: TIZANIDINE HYDROCHLORIDE
     Dosage: 1.5 TABS TWICE DAILY AND 2 TABS AT BEDTIME
     Route: 048
     Dates: start: 20141014
  33. LIORESAL [Suspect]
     Active Substance: BACLOFEN
     Dosage: 118.29MCG/DAY
     Route: 037
     Dates: start: 20150123, end: 20150125
  34. BACLOFEN. [Suspect]
     Active Substance: BACLOFEN
     Dosage: 1 TAB DAILY
     Route: 048
     Dates: start: 20141015, end: 20141218
  35. MELATONIN [Suspect]
     Active Substance: MELATONIN
     Dosage: 1 TAB DAILY
     Route: 048
     Dates: start: 20150116, end: 20150120
  36. LIORESAL [Suspect]
     Active Substance: BACLOFEN
     Dosage: 94.96MCG/DAY
     Route: 037
     Dates: start: 20141219, end: 20141223
  37. LIORESAL [Suspect]
     Active Substance: BACLOFEN
     Dosage: 94.21MCG/DAY
     Route: 037
     Dates: start: 20140331, end: 20150119
  38. CALCIUM D [Suspect]
     Active Substance: CALCIUM\VITAMIN D
     Dosage: 1 TAB DAILY
     Route: 048
     Dates: start: 20120630
  39. VERAMYST [Suspect]
     Active Substance: FLUTICASONE FUROATE
     Dosage: 27.5MCG
     Route: 055
     Dates: start: 20140415
  40. BACLOFEN. [Suspect]
     Active Substance: BACLOFEN
     Dosage: 1 TAB DAILY
     Route: 048
     Dates: start: 20141219, end: 20141224
  41. MAXZIDE-25 [Suspect]
     Active Substance: HYDROCHLOROTHIAZIDE\TRIAMTERENE
     Dosage: 1 TAB DAILY
     Route: 048
     Dates: start: 20150116
  42. LIORESAL [Suspect]
     Active Substance: BACLOFEN
     Dosage: 138.95MCG/DAY
     Route: 037
     Dates: start: 20150212, end: 20150324
  43. LIORESAL [Suspect]
     Active Substance: BACLOFEN
     Dosage: 86.36MCG/DAY
     Route: 037
     Dates: start: 20141218, end: 20141219
  44. NASACORT AQ [Suspect]
     Active Substance: TRIAMCINOLONE ACETONIDE
     Dosage: 2 SQ EA NOSTRIL DAILY AS NEEDED
     Route: 045
  45. ZYRTEC [Suspect]
     Active Substance: CETIRIZINE HYDROCHLORIDE
     Dosage: 1 TAB AT NIGHT
     Route: 048
     Dates: start: 20131015
  46. MELATONIN [Suspect]
     Active Substance: MELATONIN
     Dosage: 1 TAB DAILY
     Route: 048
     Dates: start: 20150120
  47. LIORESAL [Suspect]
     Active Substance: BACLOFEN
     Dosage: 104.54MCG/DAY
     Route: 037
     Dates: start: 20141223, end: 20140330
  48. LIORESAL [Suspect]
     Active Substance: BACLOFEN
     Dosage: 130.24MCG/DAY
     Route: 037
     Dates: start: 20150126, end: 20150209
  49. LIORESAL [Suspect]
     Active Substance: BACLOFEN
     Dosage: 152.93MCG/DAY
     Route: 037
     Dates: start: 20150501, end: 20150527
  50. LIORESAL [Suspect]
     Active Substance: BACLOFEN
     Dosage: 75MCG/DAY
     Route: 037
     Dates: start: 20160419

REACTIONS (25)
  - Cerumen impaction [Recovered/Resolved]
  - Joint effusion [Recovered/Resolved]
  - Muscle spasticity [Recovered/Resolved]
  - Pain [Recovered/Resolved]
  - Performance status decreased [Recovered/Resolved]
  - Type 2 diabetes mellitus [Recovered/Resolved]
  - Ligament sprain [Recovered/Resolved]
  - Dermatitis [Recovered/Resolved]
  - Adverse drug reaction [Recovered/Resolved]
  - Dyspepsia [Recovered/Resolved]
  - Contusion [Recovered/Resolved]
  - Skin discolouration [Recovered/Resolved]
  - Nausea [Recovered/Resolved]
  - Diabetic ketoacidosis [Recovered/Resolved]
  - Unevaluable event [Recovered/Resolved]
  - Arthralgia [Recovered/Resolved]
  - X-ray abnormal [Recovered/Resolved]
  - Fall [Recovered/Resolved]
  - Balance disorder [Recovered/Resolved]
  - Blood glucose increased [Recovered/Resolved]
  - Hypertension [Recovered/Resolved]
  - Pain in extremity [Recovered/Resolved]
  - Oedema peripheral [Recovered/Resolved]
  - Benign neoplasm of skin [Recovered/Resolved]
  - Muscle spasms [Recovered/Resolved]

NARRATIVE: CASE EVENT DATE: 2015
